FAERS Safety Report 9475606 (Version 4)
Quarter: 2014Q1

REPORT INFORMATION
  Report Type: Report from Study
  Country: BR (occurrence: BR)
  Receive Date: 20130826
  Receipt Date: 20140217
  Transmission Date: 20141002
  Serious: Yes (Death, Hospitalization, Other)
  Sender: FDA-Public Use
  Company Number: PHHY2013BR091655

PATIENT
  Age: 65 Year
  Sex: Male
  Weight: 94 kg

DRUGS (6)
  1. SANDOSTATIN LAR [Suspect]
     Indication: NEUROENDOCRINE TUMOUR
     Dosage: 30 MG, QMO (5 MONTHS AGO)
     Route: 030
     Dates: start: 201303
  2. SANDOSTATIN LAR [Suspect]
     Dosage: UNK UKN, UNK
     Route: 030
     Dates: start: 201305
  3. SANDOSTATIN LAR [Suspect]
     Dosage: UNK UKN, UNK
     Route: 030
     Dates: end: 201309
  4. DIPYRONE [Concomitant]
     Indication: PAIN
     Dosage: 2 DF, DAILY ,ONE TABLET EVERY 12 HOURS
     Route: 048
     Dates: start: 201309, end: 201311
  5. CODEINE [Concomitant]
     Indication: PAIN
     Dosage: 1 DF, EVERY 12 HOURS
     Route: 048
     Dates: end: 201311
  6. PARACETAMOL [Concomitant]
     Indication: PAIN
     Dosage: 2 DF, DAILY, 1 TABLET EVERY 12 HOURS
     Route: 048
     Dates: end: 201311

REACTIONS (18)
  - Leukaemia [Fatal]
  - Second primary malignancy [Fatal]
  - Septic shock [Fatal]
  - Femur fracture [Recovered/Resolved]
  - Urinary tract infection [Not Recovered/Not Resolved]
  - Coma [Not Recovered/Not Resolved]
  - Thrombosis [Recovering/Resolving]
  - Terminal state [Unknown]
  - Oedema peripheral [Recovering/Resolving]
  - Fluid retention [Recovering/Resolving]
  - Weight increased [Recovering/Resolving]
  - Dysphonia [Unknown]
  - Musculoskeletal disorder [Unknown]
  - Hypophagia [Not Recovered/Not Resolved]
  - Amnesia [Not Recovered/Not Resolved]
  - Erythema [Recovered/Resolved]
  - Foreign body [Recovered/Resolved]
  - Asthenia [Not Recovered/Not Resolved]
